FAERS Safety Report 8833800 (Version 1)
Quarter: 2012Q4

REPORT INFORMATION
  Report Type: Spontaneous
  Country: US (occurrence: None)
  Receive Date: 20121010
  Receipt Date: 20121010
  Transmission Date: 20130627
  Serious: No
  Sender: FDA-Public Use
  Company Number: None

PATIENT
  Age: 70 Year
  Sex: Male
  Weight: 72.7 kg

DRUGS (1)
  1. MORPHINE [Suspect]
     Indication: PAIN
     Dosage: ML  SQ
     Route: 058
     Dates: start: 20120917, end: 20120918

REACTIONS (5)
  - Delirium [None]
  - Agitation [None]
  - Paranoia [None]
  - Confusional state [None]
  - Hallucination [None]
